FAERS Safety Report 9178530 (Version 1)
Quarter: 2012Q4

REPORT INFORMATION
  Report Type: 
  Country: BR (occurrence: BR)
  Receive Date: 20121029
  Receipt Date: 20121029
  Transmission Date: 20130627
  Serious: Yes (Hospitalization, Other)
  Sender: FDA-Public Use
  Company Number: BR-SANOFI-AVENTIS-2012SA077298

PATIENT
  Age: 73 Year
  Sex: Female
  Weight: 71 kg

DRUGS (11)
  1. LANTUS SOLOSTAR [Suspect]
     Indication: TYPE 2 DIABETES MELLITUS
     Dosage: every morning
     Route: 058
  2. SOLOSTAR [Suspect]
     Indication: DEVICE THERAPY
  3. APIDRA SOLOSTAR [Suspect]
     Indication: TYPE 2 DIABETES MELLITUS
     Dosage: before dinner
     Route: 058
     Dates: start: 2008
  4. SOLOSTAR [Suspect]
     Indication: DEVICE THERAPY
     Dates: start: 2008
  5. CIPROFIBRATE [Concomitant]
     Route: 048
     Dates: start: 2004
  6. TRIMEBUTINE [Concomitant]
     Route: 048
  7. MACRODANTINA [Concomitant]
     Indication: ANTIBIOTIC THERAPY
     Route: 048
  8. BENICAR [Concomitant]
     Indication: HYPERTENSION
     Route: 048
     Dates: start: 201208
  9. PANTOPRAZOLE [Concomitant]
     Indication: GASTRIC DISORDER
     Route: 048
     Dates: start: 2002
  10. RIVOTRIL [Concomitant]
     Indication: INSOMNIA
     Route: 048
     Dates: start: 2010
  11. LEVOTHYROXINE SODIUM [Concomitant]
     Route: 048
     Dates: start: 2009

REACTIONS (15)
  - Suicide attempt [Unknown]
  - Vaginal haemorrhage [Recovered/Resolved]
  - Blood pressure increased [Recovered/Resolved]
  - Headache [Recovered/Resolved]
  - Neck pain [Recovered/Resolved]
  - Vomiting [Recovered/Resolved]
  - Blood glucose decreased [Recovered/Resolved]
  - Nausea [Recovered/Resolved]
  - Hyperhidrosis [Recovered/Resolved]
  - Tremor [Recovered/Resolved]
  - Pain in extremity [Not Recovered/Not Resolved]
  - Mobility decreased [Not Recovered/Not Resolved]
  - Vulvovaginal pruritus [Recovered/Resolved]
  - Vaginal odour [Recovered/Resolved]
  - Vaginal discharge [Recovered/Resolved]
